FAERS Safety Report 25808361 (Version 2)
Quarter: 2025Q3

REPORT INFORMATION
  Report Type: Report from Study
  Country: CA (occurrence: CA)
  Receive Date: 20250916
  Receipt Date: 20250919
  Transmission Date: 20251020
  Serious: Yes (Life-Threatening, Hospitalization, Other)
  Sender: SANOFI AVENTIS
  Company Number: CA-SA-2025SA275525

PATIENT
  Age: 26 Year
  Sex: Female

DRUGS (5)
  1. DUPILUMAB [Suspect]
     Active Substance: DUPILUMAB
     Indication: Dermatitis atopic
     Route: 058
     Dates: start: 20250910, end: 20250911
  2. BETADERM [Concomitant]
     Active Substance: BETAMETHASONE VALERATE
     Dates: start: 202305
  3. PROTOPIC [Concomitant]
     Active Substance: TACROLIMUS
     Dates: start: 202508
  4. BRYHALI [Concomitant]
     Active Substance: HALOBETASOL PROPIONATE
     Dates: start: 202508
  5. ZORYVE [Concomitant]
     Active Substance: ROFLUMILAST

REACTIONS (7)
  - Anaphylactic reaction [Unknown]
  - Dyspnoea [Unknown]
  - Swelling [Unknown]
  - Pyrexia [Unknown]
  - Rash macular [Unknown]
  - Urticaria [Unknown]
  - Maternal exposure during pregnancy [Unknown]

NARRATIVE: CASE EVENT DATE: 20250910
